FAERS Safety Report 18899660 (Version 1)
Quarter: 2021Q1

REPORT INFORMATION
  Report Type: Report from Study
  Country: CA (occurrence: CA)
  Receive Date: 20210216
  Receipt Date: 20210216
  Transmission Date: 20210420
  Serious: Yes (Other)
  Sender: FDA-Public Use
  Company Number: CA-PFIZER INC-2021106080

PATIENT
  Age: 85 Year
  Sex: Female

DRUGS (19)
  1. RITUXIMAB. [Suspect]
     Active Substance: RITUXIMAB
     Indication: RHEUMATOID ARTHRITIS
     Route: 041
  2. ANTACIDS, OTHER COMBINATIONS [Concomitant]
     Active Substance: ANTACIDS NOS
  3. ACETAMINOPHEN. [Concomitant]
     Active Substance: ACETAMINOPHEN
     Indication: PREMEDICATION
     Dosage: 100 MG
     Route: 048
  4. METHOTREXATE. [Concomitant]
     Active Substance: METHOTREXATE
     Dosage: UNK
     Route: 065
  5. PROLIA [Concomitant]
     Active Substance: DENOSUMAB
     Route: 065
  6. METHOTREXATE. [Concomitant]
     Active Substance: METHOTREXATE
     Route: 048
  7. RITUXIMAB. [Suspect]
     Active Substance: RITUXIMAB
     Indication: RHEUMATOID ARTHRITIS
     Dosage: 1000 MG
     Route: 042
  8. CALTRATE + D [CALCIUM CARBONATE;COLECALCIFEROL] [Concomitant]
  9. LOSEC [Concomitant]
     Active Substance: OMEPRAZOLE
  10. PANTOPRAZOLE MAGNESIUM [Concomitant]
     Active Substance: PANTOPRAZOLE MAGNESIUM
  11. VITAMIN B12 [Concomitant]
     Active Substance: CYANOCOBALAMIN
  12. ACETYLSALICYLIC ACID [Concomitant]
     Active Substance: ASPIRIN
  13. PREDNISONE. [Concomitant]
     Active Substance: PREDNISONE
     Dosage: 50 MG
     Route: 048
  14. ERGOCALCIFEROL. [Concomitant]
     Active Substance: ERGOCALCIFEROL
  15. VITAMIN C [Concomitant]
     Active Substance: ASCORBIC ACID
  16. DIPHENHYDRAMINE HYDROCHLORIDE. [Concomitant]
     Active Substance: DIPHENHYDRAMINE HYDROCHLORIDE
     Dosage: 50 MG
     Route: 048
  17. METOPROLOL. [Concomitant]
     Active Substance: METOPROLOL
  18. RISEDRONATE [Concomitant]
     Active Substance: RISEDRONATE SODIUM
  19. SYNTHROID [Concomitant]
     Active Substance: LEVOTHYROXINE SODIUM

REACTIONS (1)
  - Gallbladder disorder [Unknown]
